FAERS Safety Report 8032413-3 (Version None)
Quarter: 2012Q1

REPORT INFORMATION
  Report Type: 
  Country: None (occurrence: None)
  Receive Date: 20120110
  Receipt Date: 20111219
  Transmission Date: 20120608
  Serious: Yes (Other)
  Sender: FDA-Public Use
  Company Number: GB-TEVA-316229ISR

PATIENT
  Sex: Male

DRUGS (1)
  1. BISOPROLOL FUMARATE [Suspect]

REACTIONS (1)
  - SUICIDAL BEHAVIOUR [None]
